FAERS Safety Report 11706166 (Version 1)
Quarter: 2015Q4

REPORT INFORMATION
  Report Type: Spontaneous
  Country: KR (occurrence: KR)
  Receive Date: 20151106
  Receipt Date: 20151106
  Transmission Date: 20160304
  Serious: Yes (Hospitalization, Other)
  Sender: FDA-Public Use
  Company Number: KR-WATSON-2015-23742

PATIENT
  Age: 34 Year
  Sex: Female

DRUGS (5)
  1. LIDOCAINE HYDROCHLORIDE (WATSON LABORATORIES) [Suspect]
     Active Substance: LIDOCAINE HYDROCHLORIDE
     Indication: ANAESTHESIA
     Dosage: 16 MG, UNKNOWN
     Route: 037
  2. SODIUM CHLORIDE (UNKNOWN) [Suspect]
     Active Substance: SODIUM CHLORIDE
     Indication: ANAESTHESIA
     Dosage: 6CC
     Route: 037
  3. MIDAZOLAM [Concomitant]
     Active Substance: MIDAZOLAM\MIDAZOLAM HYDROCHLORIDE
     Indication: SEDATION
     Dosage: UNK
     Route: 065
  4. TRIAMCINOLONE ACETONIDE (WATSON LABORATORIES) [Suspect]
     Active Substance: TRIAMCINOLONE ACETONIDE
     Indication: ANAESTHESIA
     Dosage: 40 MG, UNKNOWN
     Route: 037
  5. HYALURONIDASE [Suspect]
     Active Substance: HYALURONIDASE
     Indication: ANAESTHESIA
     Dosage: 1500 U, UNK
     Route: 037

REACTIONS (2)
  - Stress cardiomyopathy [Recovered/Resolved]
  - Drug administered at inappropriate site [Recovered/Resolved]
